FAERS Safety Report 8511513-5 (Version None)
Quarter: 2012Q2

REPORT INFORMATION
  Report Type: 
  Country: None (occurrence: None)
  Receive Date: 20120628
  Receipt Date: 20110523
  Transmission Date: 20120825
  Serious: No
  Sender: FDA-Public Use
  Company Number: SV-ALCON-1186381

PATIENT
  Sex: Male

DRUGS (4)
  1. CHLORAMPHENICOL [Concomitant]
  2. AMPICILLIN [Concomitant]
  3. AMIKACIN [Concomitant]
  4. VIGAMOX [Suspect]
     Indication: EYE DISCHARGE
     Dosage: UNSPECIFIED UNIT, 1, 1, HOURS OPHTHALMIC
     Route: 047

REACTIONS (1)
  - DRUG INEFFECTIVE [None]
